FAERS Safety Report 4559373-1 (Version None)
Quarter: 2005Q1

REPORT INFORMATION
  Report Type: 
  Country: None (occurrence: None)
  Receive Date: 20050124
  Receipt Date: 20050115
  Transmission Date: 20050727
  Serious: Yes (Other)
  Sender: FDA-Public Use
  Company Number: US-GLAXOSMITHKLINE-A0540879A

PATIENT

DRUGS (1)
  1. NICODERM CQ [Suspect]
     Route: 062

REACTIONS (2)
  - CELLULITIS [None]
  - DERMATITIS CONTACT [None]
